FAERS Safety Report 9526209 (Version 1)
Quarter: 2013Q3

REPORT INFORMATION
  Report Type: Spontaneous
  Country: GB (occurrence: GB)
  Receive Date: 20130916
  Receipt Date: 20130916
  Transmission Date: 20140515
  Serious: Yes (Hospitalization)
  Sender: FDA-Public Use
  Company Number: GB-PFIZER INC-2013263792

PATIENT
  Age: 60 Year
  Sex: Female
  Weight: 52 kg

DRUGS (4)
  1. GABAPENTIN [Suspect]
     Indication: NEURALGIA
     Dosage: 100 MG, 3X/DAY
     Route: 048
  2. NAPROXEN [Concomitant]
     Dosage: 500 MG, 2X/DAY
     Route: 048
  3. ADCAL-D3 [Concomitant]
     Dosage: AT NIGHT. LEMON
     Route: 048
  4. PARACETAMOL [Concomitant]
     Dosage: WHEN NEEDED.
     Route: 048

REACTIONS (7)
  - Abnormal behaviour [Unknown]
  - Hallucination [Unknown]
  - Lethargy [Unknown]
  - Confusional state [Unknown]
  - Muscular weakness [Unknown]
  - Aggression [Unknown]
  - Gait disturbance [Unknown]
